FAERS Safety Report 4982477-6 (Version None)
Quarter: 2006Q2

REPORT INFORMATION
  Report Type: 
  Country: None (occurrence: None)
  Receive Date: 20060419
  Receipt Date: 20060410
  Transmission Date: 20061013
  Serious: Yes (Hospitalization, Other)
  Sender: FDA-Public Use
  Company Number: 2006050298

PATIENT
  Age: 76 Year
  Sex: Female
  Weight: 54.4316 kg

DRUGS (8)
  1. TIKOSYN [Suspect]
     Indication: ATRIAL FIBRILLATION
     Dosage: 250 MCG (125 MCG, BID), ORAL
     Route: 048
     Dates: start: 20050301
  2. PLAVIX [Concomitant]
  3. ASPIRIN [Concomitant]
  4. POTASSIUM (POTASSIUM) [Concomitant]
  5. DIURETICS (DIURETICS) [Concomitant]
  6. PROZAC [Concomitant]
  7. DRUG, UNSPECIFIED (DRUG, UNSPECIFIED) [Concomitant]
  8. TOPROL-XL [Concomitant]

REACTIONS (9)
  - ATRIAL FIBRILLATION [None]
  - BLOOD GLUCOSE INCREASED [None]
  - DIARRHOEA [None]
  - DISEASE RECURRENCE [None]
  - ERUCTATION [None]
  - HEART VALVE OPERATION [None]
  - PLATELET COUNT DECREASED [None]
  - POST PROCEDURAL COMPLICATION [None]
  - PULMONARY OEDEMA [None]
